FAERS Safety Report 7312627-8 (Version None)
Quarter: 2011Q1

REPORT INFORMATION
  Report Type: 
  Country: None (occurrence: None)
  Receive Date: 20110224
  Receipt Date: 20110120
  Transmission Date: 20110831
  Serious: Yes (Hospitalization)
  Sender: FDA-Public Use
  Company Number: US-ASTRAZENECA-2011SE03391

PATIENT
  Sex: Female

DRUGS (1)
  1. VIMOVO [Suspect]
     Dosage: 500 MG/20 MG
     Route: 048

REACTIONS (3)
  - RASH [None]
  - ANAPHYLACTIC REACTION [None]
  - HYPERSENSITIVITY [None]
